FAERS Safety Report 4315203-4 (Version None)
Quarter: 2004Q1

REPORT INFORMATION
  Report Type: 
  Country: None (occurrence: None)
  Receive Date: 20040309
  Receipt Date: 20040219
  Transmission Date: 20041129
  Serious: Yes (Other)
  Sender: FDA-Public Use
  Company Number: USA040156334

PATIENT
  Age: 48 Year
  Sex: Female

DRUGS (2)
  1. FORTEO [Suspect]
     Indication: OSTEOPOROSIS
     Dosage: 20 UG/DAY
     Dates: start: 20031105, end: 20040216
  2. MORPHINE [Concomitant]

REACTIONS (9)
  - BLOOD BLISTER [None]
  - COMPRESSION FRACTURE [None]
  - FATIGUE [None]
  - FEELING ABNORMAL [None]
  - INJECTION SITE VESICLES [None]
  - JOINT DISLOCATION [None]
  - MEMORY IMPAIRMENT [None]
  - PHARMACEUTICAL PRODUCT COMPLAINT [None]
  - SPEECH DISORDER [None]
